FAERS Safety Report 4299117-4 (Version None)
Quarter: 2004Q1

REPORT INFORMATION
  Report Type: 
  Country: None (occurrence: None)
  Receive Date: 20040219
  Receipt Date: 20021213
  Transmission Date: 20041129
  Serious: Yes (Death, Hospitalization, Other)
  Sender: FDA-Public Use
  Company Number: PHHO2002GB10069

PATIENT
  Age: 83 Year
  Sex: Female

DRUGS (3)
  1. VALSARTAN +/-HCTZ VS AMLODIPINE +/-HCTZ [Suspect]
     Indication: ESSENTIAL HYPERTENSION
     Dosage: LEVEL 1
     Route: 048
     Dates: start: 19990807
  2. VALSARTAN +/-HCTZ VS AMLODIPINE +/-HCTZ [Suspect]
     Dosage: LEVEL 4
     Route: 048
  3. ESIDRIX [Suspect]
     Indication: ESSENTIAL HYPERTENSION
     Dosage: 25 MG, QD, LEVEL 4
     Route: 048

REACTIONS (7)
  - ANGINA PECTORIS [None]
  - ATRIAL FIBRILLATION [None]
  - CHEST PAIN [None]
  - LEFT VENTRICULAR FAILURE [None]
  - MITRAL VALVE PROLAPSE [None]
  - PULMONARY OEDEMA [None]
  - UTERINE HAEMORRHAGE [None]
